FAERS Safety Report 9516562 (Version 2)
Quarter: 2014Q1

REPORT INFORMATION
  Report Type: Spontaneous
  Country: US (occurrence: None)
  Receive Date: 20130305
  Receipt Date: 20140306
  Transmission Date: 20141002
  Serious: Yes (Other)
  Sender: FDA-Public Use
  Company Number: 163-21880-12120307

PATIENT
  Age: 58 Year
  Sex: Male

DRUGS (1)
  1. REVLIMID (LENALIDOMIDE) (25  MILLIGRAM, CAPSULES) [Suspect]
     Indication: PLASMA CELL MYELOMA
     Dosage: 25MG, 1 IN 1D
     Route: 048
     Dates: start: 201003

REACTIONS (2)
  - Renal impairment [None]
  - Liver function test abnormal [None]
